FAERS Safety Report 21378012 (Version 2)
Quarter: 2022Q3

REPORT INFORMATION
  Report Type: Spontaneous
  Country: PT (occurrence: PT)
  Receive Date: 20220926
  Receipt Date: 20220930
  Transmission Date: 20221027
  Serious: Yes (Other)
  Sender: FDA-Public Use
  Company Number: None

PATIENT
  Age: 71 Year
  Sex: Male
  Weight: 100 kg

DRUGS (15)
  1. VELTASSA [Suspect]
     Active Substance: PATIROMER
     Indication: Hyperkalaemia
     Dosage: DOSE 1 - 1 SACHET PER DAY
     Route: 048
     Dates: start: 20210601, end: 20210615
  2. VELTASSA [Suspect]
     Active Substance: PATIROMER
     Dosage: DOSE 2 - 2 SACHETS PER DAY
     Route: 048
     Dates: start: 20210616, end: 20211205
  3. VELTASSA [Suspect]
     Active Substance: PATIROMER
     Dosage: DOSE 3 - 3 SACHETS PER DAY
     Route: 048
     Dates: start: 20211206, end: 20220201
  4. VELTASSA [Suspect]
     Active Substance: PATIROMER
     Dosage: DOSE 2 - 2 SACHETS PER DAY
     Route: 048
     Dates: start: 20220202, end: 20220216
  5. VELTASSA [Suspect]
     Active Substance: PATIROMER
     Dosage: DOSE 5 - DOSE UNKNOWN
     Route: 048
     Dates: start: 20220420, end: 20220429
  6. FUROSEMIDE [Concomitant]
     Active Substance: FUROSEMIDE
     Dosage: HALF A TABLET ON AN EMPTY STOMACH
     Route: 048
  7. APIXABAN [Concomitant]
     Active Substance: APIXABAN
     Dosage: 1 TABLET AT BREAKFAST + 1 TABLET AT DINNER
     Route: 048
  8. SPIRONOLACTONE [Concomitant]
     Active Substance: SPIRONOLACTONE
     Dosage: DOSE 1 - 2 TABLETS PER DAY
     Route: 048
     Dates: end: 20211205
  9. SPIRONOLACTONE [Concomitant]
     Active Substance: SPIRONOLACTONE
     Dosage: DOSE 2 - 1 TABLET PER DAY
     Route: 048
     Dates: start: 20211206, end: 20220201
  10. SPIRONOLACTONE [Concomitant]
     Active Substance: SPIRONOLACTONE
     Dosage: DOSE 3 - HALF A TABLET PER DAY
     Route: 048
     Dates: start: 20220202, end: 20220429
  11. AMLODIPINE [Concomitant]
     Active Substance: AMLODIPINE BESYLATE
     Dosage: 1 TABLET AT DINNER
     Route: 048
  12. DAPAGLIFLOZIN [Concomitant]
     Active Substance: DAPAGLIFLOZIN
     Dosage: 1 TABLET AT LUNCH
     Route: 048
  13. ATORVASTATIN [Concomitant]
     Active Substance: ATORVASTATIN
     Dosage: 1 TABLET AT DINNER
     Route: 048
  14. BISOPROLOL [Concomitant]
     Active Substance: BISOPROLOL
     Dosage: 1 TABLET AT BREAKFAST
     Route: 048
  15. SACUBITRIL\VALSARTAN [Concomitant]
     Active Substance: SACUBITRIL\VALSARTAN
     Dosage: 97 MG PLUS 103 MG?1 TABLET AT LUNCH + 1 TABLET AT DINNER
     Route: 048

REACTIONS (2)
  - Renal impairment [Recovering/Resolving]
  - Metabolic acidosis [Recovered/Resolved]

NARRATIVE: CASE EVENT DATE: 20210616
